FAERS Safety Report 7060315-8 (Version None)
Quarter: 2010Q4

REPORT INFORMATION
  Report Type: 
  Country: None (occurrence: None)
  Receive Date: 20101025
  Receipt Date: 20101018
  Transmission Date: 20110411
  Serious: Yes (Hospitalization)
  Sender: FDA-Public Use
  Company Number: A0876984A

PATIENT
  Age: 74 Year
  Sex: Female
  Weight: 91.4 kg

DRUGS (6)
  1. ADVAIR DISKUS 100/50 [Suspect]
     Indication: ASTHMA
     Route: 055
     Dates: start: 20090301, end: 20100501
  2. LIPITOR [Concomitant]
  3. ZOCOR [Concomitant]
  4. PROZAC [Concomitant]
  5. VITAMIN E [Concomitant]
  6. ASPIRIN [Concomitant]

REACTIONS (5)
  - CHEST PAIN [None]
  - COMPUTERISED TOMOGRAM [None]
  - DYSPNOEA [None]
  - LUNG INFILTRATION [None]
  - PNEUMONIA [None]
